FAERS Safety Report 10228966 (Version 1)
Quarter: 2014Q2

REPORT INFORMATION
  Report Type: Spontaneous
  Country: GB (occurrence: GB)
  Receive Date: 20140610
  Receipt Date: 20140610
  Transmission Date: 20141212
  Serious: Yes (Other)
  Sender: FDA-Public Use
  Company Number: GB-GLAXOSMITHKLINE-B0994409A

PATIENT
  Age: 46 Year
  Sex: Male

DRUGS (2)
  1. VOTRIENT [Suspect]
     Indication: RENAL CANCER METASTATIC
     Dosage: 800MG PER DAY
     Route: 048
     Dates: start: 201211, end: 20131214
  2. AZATHIOPRINE [Concomitant]

REACTIONS (2)
  - Thrombocytopenia [Recovering/Resolving]
  - Platelet count decreased [Recovering/Resolving]
